FAERS Safety Report 8785630 (Version 1)
Quarter: 2012Q4

REPORT INFORMATION
  Report Type: Spontaneous
  Country: US (occurrence: None)
  Receive Date: 20120904
  Receipt Date: 20120904
  Transmission Date: 20130627
  Serious: Yes (Other)
  Sender: FDA-Public Use
  Company Number: 110324-000039

PATIENT
  Sex: Female

DRUGS (3)
  1. PROACTIV CLEANSER [Suspect]
     Indication: ACNE
     Dosage: once dermal
     Dates: start: 20110324
  2. REPAIRING TREATMENT [Suspect]
     Dosage: once dermal
     Dates: start: 20110324
  3. REFINING MASK [Suspect]
     Dosage: once dermal
     Dates: start: 20110324

REACTIONS (1)
  - Hypersensitivity [None]
